FAERS Safety Report 26093113 (Version 1)
Quarter: 2025Q4

REPORT INFORMATION
  Report Type: Report from Study
  Country: US (occurrence: US)
  Receive Date: 20251126
  Receipt Date: 20251126
  Transmission Date: 20260118
  Serious: No
  Sender: MALLINCKRODT
  Company Number: US-MALLINCKRODT-MNK202507420

PATIENT
  Age: 34 Year
  Sex: Male

DRUGS (1)
  1. CORTICOTROPIN [Suspect]
     Active Substance: CORTICOTROPIN
     Indication: Sarcoidosis
     Dosage: 80 UNITS
     Dates: start: 20250603

REACTIONS (2)
  - Dermatitis contact [Unknown]
  - Injection site rash [Unknown]

NARRATIVE: CASE EVENT DATE: 20250101
